FAERS Safety Report 18252939 (Version 1)
Quarter: 2020Q3

REPORT INFORMATION
  Report Type: Spontaneous
  Country: GB (occurrence: GB)
  Receive Date: 20200910
  Receipt Date: 20200910
  Transmission Date: 20201103
  Serious: Yes (Life-Threatening, Hospitalization)
  Sender: FDA-Public Use
  Company Number: GB-AKRON, INC.-2089596

PATIENT
  Sex: Female

DRUGS (1)
  1. ADENOSINE. [Suspect]
     Active Substance: ADENOSINE

REACTIONS (2)
  - Ventricular fibrillation [Recovered/Resolved]
  - Circulatory collapse [Recovered/Resolved]
